FAERS Safety Report 5061826-7 (Version None)
Quarter: 2006Q2

REPORT INFORMATION
  Report Type: 
  Country: None (occurrence: None)
  Receive Date: 20060620
  Receipt Date: 20060620
  Transmission Date: 20061013
  Serious: Yes (Hospitalization)
  Sender: FDA-Public Use
  Company Number: None

PATIENT
  Sex: Male
  Weight: 63.05 kg

DRUGS (2)
  1. LISINOPRIL [Suspect]
     Indication: CORONARY ARTERY SURGERY
     Dates: start: 20060223, end: 20060630
  2. METOPROLOL 50 MG BID [Suspect]
     Indication: CORONARY ARTERY SURGERY
     Dates: start: 20060317, end: 20060630

REACTIONS (3)
  - DIZZINESS [None]
  - HYPERKALAEMIA [None]
  - HYPOTENSION [None]
